FAERS Safety Report 13191930 (Version 1)
Quarter: 2017Q1

REPORT INFORMATION
  Report Type: Spontaneous
  Country: US (occurrence: US)
  Receive Date: 20170207
  Receipt Date: 20170207
  Transmission Date: 20170428
  Serious: No
  Sender: FDA-Public Use
  Company Number: US-PFIZER INC-2017048771

PATIENT
  Age: 80 Year
  Sex: Female
  Weight: 61 kg

DRUGS (8)
  1. LYRICA [Suspect]
     Active Substance: PREGABALIN
     Indication: HEADACHE
     Dosage: 1 DF, 1X/DAY
  2. BUDESONIDE. [Concomitant]
     Active Substance: BUDESONIDE
     Indication: WHEEZING
     Dosage: 2 DF, 2X/DAY; 80-4.5 INHALER TWO PUFFS TWICE DAILY AS NEEDED
     Route: 055
  3. HYDROCODONE/ACETAMINOPHEN [Concomitant]
     Active Substance: ACETAMINOPHEN\HYDROCODONE
     Indication: PAIN
     Dosage: 0.5 DF, 2X/DAY; 5-325MG TABLET, HALF TABLET BY MOUTH TWO TIMES DAILY AS NEEDED
     Route: 048
  4. MOMETASONE FUROATE. [Concomitant]
     Active Substance: MOMETASONE FUROATE
     Indication: WHEEZING
     Dosage: 2 DF, DAILY; 50MG TWO SPRAYS BY NASAL ROUTE DAILY AS NEEDED
     Route: 045
  5. LYRICA [Suspect]
     Active Substance: PREGABALIN
     Indication: MUSCLE TWITCHING
  6. LORAZEPAM. [Concomitant]
     Active Substance: LORAZEPAM
     Indication: ANXIETY
     Dosage: 5 MG, 2X/DAY; 5MG ONE TABLET EVERY 12 HOURS AS NEEDED
  7. SUMATRIPTAN SUCCINATE. [Concomitant]
     Active Substance: SUMATRIPTAN SUCCINATE
     Indication: MIGRAINE
     Dosage: 0.5 DF, 1X/DAY; 100MG HALF TABLET ONCE A DAY AS NEEDED
  8. VENTOLINE [Concomitant]
     Active Substance: ALBUTEROL
     Indication: WHEEZING
     Dosage: 90 UG, 4X/DAY; 90 BASE MCG INHALE TWO PUFFS BY MOUTH EVERY 6 HOURS AS NEEDED
     Route: 055

REACTIONS (3)
  - Gait disturbance [Recovered/Resolved]
  - Product use issue [Unknown]
  - Dizziness [Recovered/Resolved]
